FAERS Safety Report 5414938-X (Version None)
Quarter: 2007Q3

REPORT INFORMATION
  Report Type: 
  Country: None (occurrence: None)
  Receive Date: 20070815
  Receipt Date: 20070808
  Transmission Date: 20080115
  Serious: Yes (Hospitalization)
  Sender: FDA-Public Use
  Company Number: PHBS2007PK13294

PATIENT
  Age: 75 Year
  Sex: Female

DRUGS (1)
  1. RECLAST [Suspect]
     Indication: OSTEOPOROSIS POSTMENOPAUSAL
     Dosage: 5 MG/ONCE A YEAR
     Route: 042
     Dates: start: 20070807

REACTIONS (3)
  - HYPERSENSITIVITY [None]
  - URINE OUTPUT DECREASED [None]
  - URTICARIA [None]
